FAERS Safety Report 10730841 (Version 1)
Quarter: 2015Q1

REPORT INFORMATION
  Report Type: Spontaneous
  Country: GB (occurrence: GB)
  Receive Date: 20150122
  Receipt Date: 20150122
  Transmission Date: 20150721
  Serious: Yes (Hospitalization)
  Sender: FDA-Public Use
  Company Number: GB-TEVA-535387ISR

PATIENT
  Age: 75 Year
  Sex: Male

DRUGS (3)
  1. LANSOPRAZOLE. [Suspect]
     Active Substance: LANSOPRAZOLE
     Dosage: 30 MILLIGRAM DAILY;
     Dates: end: 201412
  2. TAMSULOSIN [Suspect]
     Active Substance: TAMSULOSIN
     Dosage: 400 MICROGRAM DAILY;
     Dates: end: 201412
  3. BISOPROLOL [Suspect]
     Active Substance: BISOPROLOL
     Dosage: 2.5 MILLIGRAM DAILY;
     Dates: end: 201412

REACTIONS (3)
  - Vision blurred [Unknown]
  - Rash [Recovering/Resolving]
  - Skin exfoliation [Unknown]
